FAERS Safety Report 9652429 (Version 1)
Quarter: 2013Q4

REPORT INFORMATION
  Report Type: Other
  Country: US (occurrence: US)
  Receive Date: 20131029
  Receipt Date: 20131029
  Transmission Date: 20140711
  Serious: Yes (Other)
  Sender: FDA-Public Use
  Company Number: US-SHIRE-ALL1-2013-07195

PATIENT
  Age: 41 Year
  Sex: Female
  Weight: 88 kg

DRUGS (2)
  1. VPRIV [Suspect]
     Indication: GAUCHER^S DISEASE
     Dosage: 60 IU, 1X/2WKS
     Route: 041
     Dates: start: 2009
  2. NASONEX [Concomitant]
     Indication: ASTHMA
     Dosage: UNK, AS REQ^D
     Route: 065

REACTIONS (1)
  - Osteonecrosis [Not Recovered/Not Resolved]
